FAERS Safety Report 6157896-5 (Version None)
Quarter: 2009Q2

REPORT INFORMATION
  Report Type: 
  Country: None (occurrence: None)
  Receive Date: 20090417
  Receipt Date: 20070918
  Transmission Date: 20091009
  Serious: Yes (Hospitalization, Other)
  Sender: FDA-Public Use
  Company Number: US-ASTRAZENECA-2006UW21016

PATIENT
  Age: 52 Year
  Sex: Female
  Weight: 126.1 kg

DRUGS (14)
  1. SEROQUEL [Suspect]
     Indication: NERVOUSNESS
     Route: 048
     Dates: start: 19990101
  2. SEROQUEL [Suspect]
     Indication: MOOD SWINGS
     Route: 048
     Dates: start: 19990101
  3. EFFEXOR [Concomitant]
  4. CYMBALTA [Concomitant]
  5. DESYREL [Concomitant]
  6. GLUCOTROL [Concomitant]
  7. KLONOPIN [Concomitant]
  8. MOTRIN [Concomitant]
  9. LUNESTA [Concomitant]
  10. PREMARIN [Concomitant]
  11. ATIVAN [Concomitant]
  12. AMARYL [Concomitant]
  13. PHENADOZ [Concomitant]
  14. CLARITIN [Concomitant]

REACTIONS (6)
  - CARDIAC FAILURE [None]
  - DIABETES MELLITUS [None]
  - INJURY [None]
  - MAJOR DEPRESSION [None]
  - NEPHROLITHIASIS [None]
  - SUICIDAL IDEATION [None]
